FAERS Safety Report 4351791-X (Version None)
Quarter: 2004Q2

REPORT INFORMATION
  Report Type: 
  Country: None (occurrence: None)
  Receive Date: 20040429
  Receipt Date: 20040312
  Transmission Date: 20050107
  Serious: No
  Sender: FDA-Public Use
  Company Number: 2004-113799-NL

PATIENT
  Age: 35 Year
  Sex: Female
  Weight: 59.1 kg

DRUGS (3)
  1. NUVARING [Suspect]
     Indication: CONTRACEPTION
     Dates: start: 20030101
  2. WELLBUTRIN [Concomitant]
  3. PROZAC [Concomitant]

REACTIONS (2)
  - DEVICE FAILURE [None]
  - DIZZINESS [None]
